FAERS Safety Report 6682305-7 (Version None)
Quarter: 2010Q2

REPORT INFORMATION
  Report Type: 
  Country: None (occurrence: None)
  Receive Date: 20100414
  Receipt Date: 20100414
  Transmission Date: 20101027
  Serious: Yes (Other)
  Sender: FDA-Public Use
  Company Number: None

PATIENT
  Sex: Male
  Weight: 81.6475 kg

DRUGS (2)
  1. AZITHROMYCIN [Suspect]
     Dosage: 2 TABLETS DAY 1 1 TABLET EACH DAY
     Dates: start: 20100322
  2. AZITHROMYCIN [Suspect]
     Dosage: 2 TABLETS DAY 1 1 TABLET EACH DAY
     Dates: start: 20100323

REACTIONS (3)
  - BURNING SENSATION [None]
  - PRURITUS GENERALISED [None]
  - RASH [None]
